FAERS Safety Report 16050836 (Version 1)
Quarter: 2019Q1

REPORT INFORMATION
  Report Type: Spontaneous
  Country: US (occurrence: US)
  Receive Date: 20190308
  Receipt Date: 20190308
  Transmission Date: 20190418
  Serious: No
  Sender: FDA-Public Use
  Company Number: US-PFIZER INC-2019099721

PATIENT
  Age: 16 Year
  Sex: Male

DRUGS (2)
  1. TOFACITINIB [Suspect]
     Active Substance: TOFACITINIB
     Indication: ALOPECIA
     Dosage: UNK
     Route: 061
     Dates: start: 20160630
  2. LIDODERM [Suspect]
     Active Substance: LIDOCAINE
     Indication: ALOPECIA
     Dosage: UNK
     Route: 061
     Dates: start: 20160630

REACTIONS (1)
  - Drug ineffective for unapproved indication [Unknown]
